FAERS Safety Report 6564701-1 (Version None)
Quarter: 2010Q1

REPORT INFORMATION
  Report Type: 
  Country: None (occurrence: None)
  Receive Date: 20100201
  Receipt Date: 20100127
  Transmission Date: 20100710
  Serious: Yes (Hospitalization)
  Sender: FDA-Public Use
  Company Number: US-SANOFI-AVENTIS-2010SA005497

PATIENT
  Age: 60 Year
  Sex: Male

DRUGS (11)
  1. PLAVIX [Suspect]
     Indication: STENT PLACEMENT
     Route: 048
     Dates: start: 20010101, end: 20100113
  2. PLAVIX [Suspect]
     Route: 048
     Dates: start: 20100116
  3. PLATELET AGGREGATION INHIBITORS [Concomitant]
     Route: 065
     Dates: start: 20100113, end: 20100116
  4. PERCOCET [Concomitant]
  5. COZAAR [Concomitant]
  6. ISOSORBIDE [Concomitant]
  7. LORAZEPAM [Concomitant]
  8. KLONOPIN [Concomitant]
  9. PROVIGIL [Concomitant]
  10. ASPIRIN [Concomitant]
  11. DILTIAZEM [Concomitant]

REACTIONS (6)
  - CARDIAC ARREST [None]
  - CHEST PAIN [None]
  - LIP SWELLING [None]
  - MYOCARDIAL INFARCTION [None]
  - OVERDOSE [None]
  - PARAESTHESIA ORAL [None]
